FAERS Safety Report 10148420 (Version 1)
Quarter: 2014Q2

REPORT INFORMATION
  Report Type: Spontaneous
  Country: US (occurrence: US)
  Receive Date: 20140501
  Receipt Date: 20140501
  Transmission Date: 20141212
  Serious: No
  Sender: FDA-Public Use
  Company Number: US-AMGEN-USASP2014029243

PATIENT
  Age: 51 Year
  Sex: Female

DRUGS (12)
  1. ENBREL [Suspect]
     Indication: PSORIATIC ARTHROPATHY
     Dosage: UNK
     Route: 065
     Dates: start: 2009
  2. BETAMETHASONE [Concomitant]
     Indication: ALOPECIA
     Dosage: UNK
  3. LOSARTAN [Concomitant]
     Indication: HYPERTENSION
  4. NEXIUM                             /01479302/ [Concomitant]
     Indication: GASTROOESOPHAGEAL REFLUX DISEASE
     Dosage: UNK
  5. REGLAN                             /00041901/ [Concomitant]
     Indication: GASTROOESOPHAGEAL REFLUX DISEASE
     Dosage: UNK
  6. ALLOPURINOL [Concomitant]
     Indication: GOUT
     Dosage: UNK UNK, QD
  7. TRAMADOL [Concomitant]
     Indication: PAIN
     Dosage: UNK UNK, AS NECESSARY
  8. BABY ASPIRIN [Concomitant]
     Dosage: UNK UNK, QD
  9. SYMBICORT [Concomitant]
     Indication: ASTHMA
     Dosage: TWO IN ONE DAY
  10. ALBUTEROL                          /00139501/ [Concomitant]
     Indication: ASTHMA
     Dosage: UNK UNK, AS NECESSARY
  11. ALBUTEROL                          /00139501/ [Concomitant]
     Indication: ASTHMA
     Dosage: UNK UNK, QD
  12. ONGLYZA [Concomitant]
     Indication: HYPERGLYCAEMIA
     Dosage: UNK UNK, QD

REACTIONS (2)
  - Drug ineffective [Unknown]
  - Arthritis [Unknown]
